FAERS Safety Report 9724748 (Version 1)
Quarter: 2013Q4

REPORT INFORMATION
  Report Type: Report from Study
  Country: NL (occurrence: NL)
  Receive Date: 20131202
  Receipt Date: 20131202
  Transmission Date: 20140711
  Serious: Yes (Hospitalization)
  Sender: FDA-Public Use
  Company Number: NL-B.I. PHARMACEUTICALS,INC./RIDGEFIELD-2013-BI-39209NL

PATIENT
  Age: 61 Year
  Sex: Female

DRUGS (1)
  1. PRADAXA [Suspect]
     Dosage: 150 MG
     Dates: start: 201304

REACTIONS (1)
  - Transient ischaemic attack [Recovered/Resolved]
